FAERS Safety Report 9356396 (Version 2)
Quarter: 2013Q4

REPORT INFORMATION
  Report Type: Spontaneous
  Country: US (occurrence: US)
  Receive Date: 20130619
  Receipt Date: 20131104
  Transmission Date: 20140711
  Serious: Yes (Disabling, Other)
  Sender: FDA-Public Use
  Company Number: US-PFIZER INC-2013180813

PATIENT
  Age: 38 Year
  Sex: Male
  Weight: 134 kg

DRUGS (3)
  1. VIAGRA [Suspect]
     Indication: ERECTILE DYSFUNCTION
     Dosage: 100 MG, EVERY NIGHT (QHS)
     Route: 048
     Dates: start: 2003
  2. ENALAPRIL MALEATE [Suspect]
     Indication: HYPERTENSION
     Dosage: 20 MG, DAILY
  3. GLYBURIDE [Concomitant]
     Indication: DIABETES MELLITUS
     Dosage: 5 MG, 2X/DAY

REACTIONS (5)
  - Back injury [Unknown]
  - Back pain [Unknown]
  - Blood pressure increased [Unknown]
  - Depressed mood [Unknown]
  - Impaired work ability [Unknown]
